FAERS Safety Report 8453117-9 (Version None)
Quarter: 2012Q2

REPORT INFORMATION
  Report Type: 
  Country: None (occurrence: None)
  Receive Date: 20120620
  Receipt Date: 20120507
  Transmission Date: 20120825
  Serious: No
  Sender: FDA-Public Use
  Company Number: US-VERTEX PHARMACEUTICALS INC.-AE-2012-006649

PATIENT
  Sex: Female
  Weight: 97.156 kg

DRUGS (8)
  1. PEGASYS [Concomitant]
     Indication: HEPATITIS C
     Dates: start: 20120226
  2. RIBASPHERE [Concomitant]
     Indication: HEPATITIS C
     Dates: start: 20120226
  3. ACTOS [Concomitant]
  4. PROPYL-THIOURACIL [Concomitant]
  5. GLYBURIDE [Concomitant]
  6. INCIVEK [Suspect]
     Indication: HEPATITIS C
     Route: 048
     Dates: start: 20120226
  7. ASPIRIN [Concomitant]
  8. CALCIUM [Concomitant]

REACTIONS (2)
  - RASH PAPULAR [None]
  - PRURITUS [None]
